FAERS Safety Report 8154959-X (Version None)
Quarter: 2012Q1

REPORT INFORMATION
  Report Type: 
  Country: None (occurrence: None)
  Receive Date: 20120221
  Receipt Date: 20120217
  Transmission Date: 20120608
  Serious: Yes (Hospitalization)
  Sender: FDA-Public Use
  Company Number: PHHY2012AT005158

PATIENT
  Age: 85 Year
  Sex: Female

DRUGS (2)
  1. CORTICOSTEROIDS [Concomitant]
     Dosage: UNK UKN, UNK
     Route: 048
  2. ZOLEDRONOC ACID [Suspect]
     Route: 042
     Dates: start: 20111201

REACTIONS (3)
  - ARTHRITIS [None]
  - POLYMYALGIA RHEUMATICA [None]
  - DRUG RESISTANCE [None]
